FAERS Safety Report 6374052-6 (Version None)
Quarter: 2009Q3

REPORT INFORMATION
  Report Type: 
  Country: None (occurrence: None)
  Receive Date: 20090922
  Receipt Date: 20090922
  Transmission Date: 20100115
  Serious: Yes (Other)
  Sender: FDA-Public Use
  Company Number: None

PATIENT
  Sex: Female
  Weight: 63.5036 kg

DRUGS (2)
  1. RID MOUSSE [Suspect]
     Dosage: PROBABLY UP TO 5 TIMES. USED OVIDE X 2
     Dates: start: 20070101, end: 20080301
  2. OVIDE [Suspect]
     Dosage: PROBABLY UP TO 5 TIMES. USED OVIDE X 2
     Dates: start: 20070101, end: 20080301

REACTIONS (1)
  - ALOPECIA [None]
